FAERS Safety Report 9369662 (Version 1)
Quarter: 2013Q2

REPORT INFORMATION
  Report Type: Report from Study
  Country: JP (occurrence: JP)
  Receive Date: 20130626
  Receipt Date: 20130626
  Transmission Date: 20140414
  Serious: No
  Sender: FDA-Public Use
  Company Number: JP-JNJFOC-20130612493

PATIENT
  Age: 47 Year
  Sex: Male
  Weight: 70 kg

DRUGS (7)
  1. DUROTEP MT [Suspect]
     Indication: PAIN
     Route: 062
     Dates: start: 20110618, end: 20110713
  2. DUROTEP MT [Suspect]
     Indication: PAIN
     Route: 062
     Dates: start: 20110521, end: 20110617
  3. DUROTEP MT [Suspect]
     Indication: PAIN
     Route: 062
     Dates: start: 20110416, end: 20110520
  4. DUROTEP MT [Suspect]
     Indication: PAIN
     Route: 062
     Dates: start: 20110319, end: 20110415
  5. METHYCOBAL [Concomitant]
     Indication: PAIN
     Route: 048
  6. GABAPEN [Concomitant]
     Indication: PAIN
     Route: 048
  7. NOVAMIN [Concomitant]
     Indication: PROPHYLAXIS
     Route: 048
     Dates: start: 20110319, end: 20110401

REACTIONS (3)
  - Nausea [Recovered/Resolved]
  - Somnolence [Recovered/Resolved]
  - Wrong technique in drug usage process [Unknown]
